FAERS Safety Report 19264812 (Version 2)
Quarter: 2021Q2

REPORT INFORMATION
  Report Type: Spontaneous
  Country: GB (occurrence: GB)
  Receive Date: 20210517
  Receipt Date: 20210529
  Transmission Date: 20210717
  Serious: Yes (Disabling, Other)
  Sender: FDA-Public Use
  Company Number: GB-AUROBINDO-AUR-APL-2021-019433

PATIENT
  Age: 24 Year
  Sex: Male

DRUGS (7)
  1. CIPRALEX [Concomitant]
     Active Substance: ESCITALOPRAM OXALATE
     Indication: ANTIDEPRESSANT THERAPY
     Dosage: 10 MILLIGRAM, ONCE A DAY
     Route: 065
     Dates: start: 201507
  2. CITALOPRAM [Concomitant]
     Active Substance: CITALOPRAM HYDROBROMIDE
     Indication: PRODUCT USED FOR UNKNOWN INDICATION
     Dosage: 10 MILLIGRAM (INITIALLY )
     Route: 065
     Dates: start: 201507
  3. SERTRALINE [Concomitant]
     Active Substance: SERTRALINE HYDROCHLORIDE
     Indication: ANTIDEPRESSANT THERAPY
     Dosage: UNK (50MG INITIALLY THEN 100MG )
     Route: 048
  4. RISPERIDONE. [Concomitant]
     Active Substance: RISPERIDONE
     Indication: PRODUCT USED FOR UNKNOWN INDICATION
     Dosage: UNK
     Route: 048
  5. TEMAZEPAM. [Concomitant]
     Active Substance: TEMAZEPAM
     Indication: POOR QUALITY SLEEP
     Dosage: 10 MILLIGRAM
     Route: 048
  6. TRAZODONE [Concomitant]
     Active Substance: TRAZODONE HYDROCHLORIDE
     Indication: ANTIDEPRESSANT THERAPY
     Dosage: UNK (50MG INITIALLY INCREASED TO 100MG DAILY THEN REDUCED TO 50MG BEFORE STOPPING )
     Route: 065
     Dates: start: 2015, end: 201507
  7. MIRTAZAPINE. [Suspect]
     Active Substance: MIRTAZAPINE
     Indication: ANTIDEPRESSANT THERAPY
     Dosage: 7.5 MILLIGRAM (UPTITRATED TO 45MG DAILY THEN REDUCED DOWN TO STOP )
     Route: 048
     Dates: start: 2014, end: 2015

REACTIONS (11)
  - Abnormal weight gain [Unknown]
  - Nightmare [Unknown]
  - Nocturnal dyspnoea [Unknown]
  - Libido decreased [Unknown]
  - Abnormal dreams [Unknown]
  - Aggression [Unknown]
  - Weight increased [Unknown]
  - Intrusive thoughts [Unknown]
  - Homicidal ideation [Unknown]
  - Confusional state [Unknown]
  - Breathing-related sleep disorder [Unknown]
